FAERS Safety Report 6982473-3 (Version None)
Quarter: 2010Q3

REPORT INFORMATION
  Report Type: 
  Country: None (occurrence: None)
  Receive Date: 20100914
  Receipt Date: 20100125
  Transmission Date: 20110219
  Serious: No
  Sender: FDA-Public Use
  Company Number: US-PFIZER INC-2010011482

PATIENT
  Sex: Male
  Weight: 95.3 kg

DRUGS (2)
  1. LYRICA [Suspect]
     Indication: INTERVERTEBRAL DISC PROTRUSION
     Dosage: UNK
     Route: 048
     Dates: start: 20091201
  2. CYMBALTA [Concomitant]
     Indication: DEPRESSION
     Dosage: UNK
     Route: 048

REACTIONS (7)
  - DECREASED APPETITE [None]
  - FEELING ABNORMAL [None]
  - HYPERHIDROSIS [None]
  - IRRITABILITY [None]
  - JAW DISORDER [None]
  - SEDATION [None]
  - WITHDRAWAL SYNDROME [None]
